FAERS Safety Report 4537668-5 (Version None)
Quarter: 2004Q4

REPORT INFORMATION
  Report Type: 
  Country: None (occurrence: None)
  Receive Date: 20041216
  Receipt Date: 20040204
  Transmission Date: 20050328
  Serious: Yes (Other)
  Sender: FDA-Public Use
  Company Number: HQWYE837005FEB04

PATIENT
  Age: 17 Year
  Sex: Male
  Weight: 86.26 kg

DRUGS (3)
  1. EFFEXOR XR [Suspect]
     Indication: DEPRESSION
     Dosage: 150 MG 1X PER 1 DAY, ORAL
     Route: 048
     Dates: start: 20030501
  2. COCAINE (COCAINE) [Suspect]
  3. HYPNOTICS AND SEDATIVES (HYPNOTICS AND SEDATIVES) [Suspect]
     Dosage: OVERDOSE AMOUNT UNKNOWN, ORAL
     Route: 048

REACTIONS (1)
  - SUICIDE ATTEMPT [None]
